FAERS Safety Report 7963915-3 (Version None)
Quarter: 2011Q4

REPORT INFORMATION
  Report Type: 
  Country: None (occurrence: None)
  Receive Date: 20111208
  Receipt Date: 20111128
  Transmission Date: 20120403
  Serious: Yes (Other)
  Sender: FDA-Public Use
  Company Number: US-BAYER-2011-114300

PATIENT
  Sex: Female

DRUGS (3)
  1. YAZ [Suspect]
     Indication: ACNE
     Dosage: UNK
     Dates: start: 20081001, end: 20081101
  2. DROSPIRENONE AND ETHINYL ESTRADIOL [Suspect]
     Indication: ACNE
     Dosage: UNK
     Dates: start: 20081101, end: 20091101
  3. YAZ [Suspect]
     Dosage: UNK
     Dates: start: 20091101, end: 20100601

REACTIONS (3)
  - INJURY [None]
  - CHOLECYSTITIS ACUTE [None]
  - PAIN [None]
